FAERS Safety Report 12071637 (Version 1)
Quarter: 2016Q1

REPORT INFORMATION
  Report Type: Spontaneous
  Country: US (occurrence: US)
  Receive Date: 20160212
  Receipt Date: 20160212
  Transmission Date: 20160526
  Serious: No
  Sender: FDA-Public Use
  Company Number: US-ASTRAZENECA-2016SE11758

PATIENT
  Sex: Female

DRUGS (1)
  1. CRESTOR [Suspect]
     Active Substance: ROSUVASTATIN CALCIUM
     Route: 048

REACTIONS (6)
  - Arthralgia [Unknown]
  - Alanine aminotransferase increased [Unknown]
  - Osteoarthritis [Unknown]
  - Myalgia [Unknown]
  - Fatigue [Unknown]
  - Pain in extremity [Unknown]
